FAERS Safety Report 10372545 (Version 2)
Quarter: 2014Q3

REPORT INFORMATION
  Report Type: Spontaneous
  Country: US (occurrence: US)
  Receive Date: 20140808
  Receipt Date: 20140808
  Transmission Date: 20150326
  Serious: No
  Sender: FDA-Public Use
  Company Number: US-BRISTOL-MYERS SQUIBB COMPANY-19167378

PATIENT
  Age: 50 Year
  Sex: Female
  Weight: 70.29 kg

DRUGS (1)
  1. SPRYCEL [Suspect]
     Active Substance: DASATINIB
     Indication: THYMOMA
     Dosage: BEFORE DOSE:100 MG ONE MONTH AGO
     Route: 048

REACTIONS (2)
  - Off label use [Unknown]
  - Drug dose omission [Unknown]
